FAERS Safety Report 6803907-0 (Version None)
Quarter: 2010Q2

REPORT INFORMATION
  Report Type: 
  Country: None (occurrence: None)
  Receive Date: 20100628
  Receipt Date: 20100616
  Transmission Date: 20101027
  Serious: Yes (Other)
  Sender: FDA-Public Use
  Company Number: PHHY2010JP39774

PATIENT

DRUGS (2)
  1. NEORAL [Suspect]
     Indication: NEPHROTIC SYNDROME
     Dosage: 100 MG
     Route: 048
  2. NEORAL [Suspect]
     Dosage: 100 MG
     Route: 048

REACTIONS (6)
  - ALTERED STATE OF CONSCIOUSNESS [None]
  - BLOOD ALBUMIN DECREASED [None]
  - CEREBRAL ISCHAEMIA [None]
  - HEPATIC FUNCTION ABNORMAL [None]
  - ORAL ADMINISTRATION COMPLICATION [None]
  - SOMNOLENCE [None]
